FAERS Safety Report 15563041 (Version 1)
Quarter: 2018Q4

REPORT INFORMATION
  Report Type: Spontaneous
  Country: FR (occurrence: FR)
  Receive Date: 20181029
  Receipt Date: 20181029
  Transmission Date: 20190205
  Serious: Yes (Hospitalization)
  Sender: FDA-Public Use
  Company Number: FR-PURDUE-GBR-2018-0060869

PATIENT
  Age: 29 Year
  Sex: Male

DRUGS (13)
  1. METHYLENEDIOXYMETHAMPHETAMINE [Suspect]
     Active Substance: MIDOMAFETAMINE
     Indication: DRUG ABUSE
     Dosage: NON RENSEIGNEE
     Route: 048
     Dates: start: 2008, end: 2014
  2. TEMESTA                            /00273201/ [Suspect]
     Active Substance: LORAZEPAM
     Indication: PRODUCT USED FOR UNKNOWN INDICATION
     Dosage: 5 DF, DAILY
     Route: 065
  3. CANNABIS [Suspect]
     Active Substance: CANNABIS SATIVA SUBSP. INDICA TOP
     Indication: DRUG ABUSE
     Dosage: NON RENSEIGNEE
     Route: 055
     Dates: start: 2005, end: 2005
  4. LSD [Suspect]
     Active Substance: LYSERGIDE
     Indication: DRUG ABUSE
     Dosage: NON RENSEIGNEE
     Route: 048
     Dates: start: 2008, end: 2014
  5. COCAINE [Suspect]
     Active Substance: COCAINE
     Indication: DRUG ABUSE
     Dosage: NON RENSEIGNE
     Route: 042
     Dates: start: 2008
  6. SUBUTEX [Suspect]
     Active Substance: BUPRENORPHINE HYDROCHLORIDE
     Indication: PRODUCT USED FOR UNKNOWN INDICATION
     Dosage: NON RENSEIGNEE
     Route: 042
     Dates: start: 2013, end: 2014
  7. HEROIN [Suspect]
     Active Substance: DIAMORPHINE
     Indication: DRUG DEPENDENCE
     Dosage: NON RENSEIGNEE
     Route: 065
     Dates: start: 2008, end: 2014
  8. MORPHINE SULFATE. [Suspect]
     Active Substance: MORPHINE SULFATE
     Indication: DRUG DEPENDENCE
     Dosage: NON RENSEIGNEE
     Route: 065
  9. ALCOOL MODIFIE [Suspect]
     Active Substance: ALCOHOL
     Indication: ALCOHOL ABUSE
     Dosage: 10 U/JOUR
     Route: 048
     Dates: start: 2005
  10. KETAMINE [Suspect]
     Active Substance: KETAMINE
     Indication: PRODUCT USED FOR UNKNOWN INDICATION
     Dosage: NON RENSEIGNEE
     Route: 065
     Dates: start: 2008, end: 2014
  11. VALIUM [Suspect]
     Active Substance: DIAZEPAM
     Indication: PRODUCT USED FOR UNKNOWN INDICATION
     Dosage: 10 DF, DAILY
     Route: 065
  12. NICOTINE. [Suspect]
     Active Substance: NICOTINE
     Indication: TOBACCO USER
     Dosage: 10 CIG/JOUR
     Route: 055
     Dates: start: 1999
  13. METHADONE [Suspect]
     Active Substance: METHADONE HYDROCHLORIDE
     Indication: PRODUCT USED FOR UNKNOWN INDICATION
     Dosage: NON RENSEIGNEE
     Route: 048
     Dates: start: 2014

REACTIONS (4)
  - Substance abuse [Recovering/Resolving]
  - Alcohol abuse [Recovering/Resolving]
  - Drug dependence [Recovering/Resolving]
  - Intentional product misuse [Recovering/Resolving]

NARRATIVE: CASE EVENT DATE: 2005
